FAERS Safety Report 19939828 (Version 1)
Quarter: 2021Q4

REPORT INFORMATION
  Report Type: Spontaneous
  Country: US (occurrence: US)
  Receive Date: 20211011
  Receipt Date: 20211011
  Transmission Date: 20220303
  Serious: No
  Sender: FDA-Public Use
  Company Number: US-PFIZER INC-2021756785

PATIENT
  Age: 75 Year
  Sex: Female

DRUGS (7)
  1. IBRANCE [Suspect]
     Active Substance: PALBOCICLIB
     Dosage: 125 MG
     Dates: start: 20210503
  2. IBRANCE [Suspect]
     Active Substance: PALBOCICLIB
     Dosage: 125 MG
     Dates: start: 20210413
  3. IBRANCE [Suspect]
     Active Substance: PALBOCICLIB
     Dosage: 125 MG
     Dates: start: 20210618
  4. IBRANCE [Suspect]
     Active Substance: PALBOCICLIB
     Dosage: 125 MG
     Dates: start: 20210620
  5. IBRANCE [Suspect]
     Active Substance: PALBOCICLIB
     Dosage: 125 MG
     Dates: start: 20210621
  6. IBRANCE [Suspect]
     Active Substance: PALBOCICLIB
     Dosage: 125 MG
     Dates: start: 20210623
  7. IBRANCE [Suspect]
     Active Substance: PALBOCICLIB
     Dosage: 125 MG
     Dates: start: 20210706

REACTIONS (8)
  - Inappropriate schedule of product administration [Unknown]
  - Muscular weakness [Not Recovered/Not Resolved]
  - Constipation [Unknown]
  - Limb discomfort [Unknown]
  - Haemoglobin decreased [Unknown]
  - Fatigue [Unknown]
  - Asthenia [Unknown]
  - White blood cell count decreased [Not Recovered/Not Resolved]
